FAERS Safety Report 17833864 (Version 1)
Quarter: 2020Q2

REPORT INFORMATION
  Report Type: Spontaneous
  Country: US (occurrence: US)
  Receive Date: 20200528
  Receipt Date: 20200528
  Transmission Date: 20200714
  Serious: No
  Sender: FDA-Public Use
  Company Number: US-ASTRAZENECA-2020SE69256

PATIENT
  Sex: Female

DRUGS (1)
  1. SYNAGIS [Suspect]
     Active Substance: PALIVIZUMAB
     Indication: ANAEMIA NEONATAL
     Route: 030
     Dates: start: 20200221

REACTIONS (3)
  - Intentional product misuse [Unknown]
  - Feeling abnormal [Unknown]
  - Pyrexia [Unknown]
